FAERS Safety Report 24574535 (Version 3)
Quarter: 2025Q1

REPORT INFORMATION
  Report Type: Spontaneous
  Country: US (occurrence: US)
  Receive Date: 20241104
  Receipt Date: 20250102
  Transmission Date: 20250408
  Serious: Yes (Life-Threatening, Hospitalization)
  Sender: STRIDES
  Company Number: None

PATIENT

DRUGS (2)
  1. IBUPROFEN [Suspect]
     Active Substance: IBUPROFEN
     Indication: Product used for unknown indication
     Route: 048
     Dates: start: 202202, end: 202202
  2. DIPHENHYDRAMINE [Suspect]
     Active Substance: DIPHENHYDRAMINE
     Indication: Product used for unknown indication
     Route: 048
     Dates: start: 202202, end: 202202

REACTIONS (23)
  - Cardiac arrest [Recovered/Resolved]
  - Electrocardiogram QT prolonged [Unknown]
  - Respiratory acidosis [Recovered/Resolved]
  - Bradycardia [Recovered/Resolved]
  - Bundle branch block right [Unknown]
  - Acute respiratory distress syndrome [Recovered/Resolved]
  - Pulmonary sequestration [Unknown]
  - Nodal rhythm [Unknown]
  - Multiple organ dysfunction syndrome [Unknown]
  - Loss of consciousness [Unknown]
  - Hyperkalaemia [Unknown]
  - Acidosis [Recovered/Resolved]
  - Pupil fixed [Unknown]
  - Drug level increased [Unknown]
  - Lung opacity [Unknown]
  - Coma [Unknown]
  - Aspiration [Unknown]
  - Electrocardiogram ST segment depression [Unknown]
  - Hypotension [Not Recovered/Not Resolved]
  - Renal impairment [Unknown]
  - Metabolic acidosis [Recovered/Resolved]
  - Renal failure [Unknown]
  - Overdose [Unknown]

NARRATIVE: CASE EVENT DATE: 20220201
